FAERS Safety Report 5955800-3 (Version None)
Quarter: 2008Q4

REPORT INFORMATION
  Report Type: 
  Country: None (occurrence: None)
  Receive Date: 20081113
  Receipt Date: 20081106
  Transmission Date: 20090506
  Serious: Yes (Hospitalization, Other)
  Sender: FDA-Public Use
  Company Number: TCI2008A03392

PATIENT
  Age: 83 Year
  Sex: Male

DRUGS (13)
  1. LANSOPRAZOLE [Suspect]
     Indication: DUODENAL ULCER
     Dosage: 15 MG (15MG, 1 IN 1 D), PER ORAL
     Route: 048
     Dates: start: 20080614, end: 20080625
  2. DOGMATYL (SULPIRIDE) (PREPARATION FOR ORAL USE (NOS)) [Concomitant]
  3. MYSLEE (ZOLPIDEM TARTRATE) (TABLETS) [Concomitant]
  4. URIEF (SILODOSIN) (CAPSULES) [Concomitant]
  5. ZANTAC (RANITIDINE HYDROCHLORIDE) (TABLETS) [Concomitant]
  6. FOLICRON (METOCLOPRAMIDE) (PREPARATION FOR ORAL USE (NOS)) [Concomitant]
  7. SUVENYL (HYALURONATE SODIUM) (INJECTION) [Concomitant]
  8. BIOFERMIN (BIOFERMIN) (PREPARATION OFR ORAL USE (NOS)) [Concomitant]
  9. STROCAIN (OXETACAINE) (PREPARATION FOR ORAL USE (NOS)) [Concomitant]
  10. APLACE (TROCIPIDE) (PREPARATION FOR ORAL USE (NOS)) [Concomitant]
  11. PANTOSIN (PANTETHINE) (POWDER) [Concomitant]
  12. SENNOSIDE (SENNOSIDE A+B CALCIUM) (PREPARATION FOR ORAL USE (NOS)) [Concomitant]
  13. MAGNESIUM OXIDE (PREPARATION FOR ORAL USE (NOS)) [Concomitant]

REACTIONS (17)
  - BETA 2 MICROGLOBULIN URINE INCREASED [None]
  - BETA-N-ACETYL-D-GLUCOSAMINIDASE INCREASED [None]
  - DRUG HYPERSENSITIVITY [None]
  - FEELING HOT [None]
  - HEPATIC FUNCTION ABNORMAL [None]
  - INTERSTITIAL LUNG DISEASE [None]
  - LIVER DISORDER [None]
  - OCCUPATIONAL EXPOSURE TO DUST [None]
  - ORCHITIS [None]
  - PNEUMONIA [None]
  - PNEUMONIA BACTERIAL [None]
  - RENAL DISORDER [None]
  - SCAB [None]
  - SCROTAL DISORDER [None]
  - SCROTAL ERYTHEMA [None]
  - TUBULOINTERSTITIAL NEPHRITIS [None]
  - URINE SODIUM INCREASED [None]
